FAERS Safety Report 4861195-9 (Version None)
Quarter: 2005Q4

REPORT INFORMATION
  Report Type: 
  Country: None (occurrence: None)
  Receive Date: 20051216
  Receipt Date: 20051205
  Transmission Date: 20060501
  Serious: Yes (Other)
  Sender: FDA-Public Use
  Company Number: HQWYE833906DEC05

PATIENT

DRUGS (1)
  1. CORDARONE [Suspect]
     Dosage: UNSPECIFIED;

REACTIONS (2)
  - BLOOD BILIRUBIN INCREASED [None]
  - NEONATAL DISORDER [None]
